FAERS Safety Report 9695125 (Version 2)
Quarter: 2013Q4

REPORT INFORMATION
  Report Type: Report from Study
  Country: CA (occurrence: CA)
  Receive Date: 20131119
  Receipt Date: 20131119
  Transmission Date: 20140711
  Serious: Yes (Death, Other)
  Sender: FDA-Public Use
  Company Number: PHHY2013CA043977

PATIENT
  Age: 75 Year
  Sex: Male

DRUGS (2)
  1. EXJADE [Suspect]
     Indication: MYELODYSPLASTIC SYNDROME
     Dosage: 2000 MG, DAILY
     Route: 048
     Dates: start: 20130416, end: 20130425
  2. EXJADE [Suspect]
     Dosage: 2000 MG, QD
     Route: 048

REACTIONS (3)
  - Death [Fatal]
  - Rash generalised [Unknown]
  - Rash macular [Recovering/Resolving]
